FAERS Safety Report 5498000-6 (Version None)
Quarter: 2007Q4

REPORT INFORMATION
  Report Type: 
  Country: None (occurrence: None)
  Receive Date: 20071018
  Receipt Date: 20061211
  Transmission Date: 20080405
  Serious: Yes (Hospitalization)
  Sender: FDA-Public Use
  Company Number: 2005100292

PATIENT
  Age: 41 Year
  Sex: Female

DRUGS (1)
  1. NEURONTIN [Suspect]
     Indication: FIBROMYALGIA
     Dates: start: 20001010, end: 20020419

REACTIONS (2)
  - DRUG INEFFECTIVE [None]
  - SUICIDAL IDEATION [None]
